FAERS Safety Report 5518038-X (Version None)
Quarter: 2007Q4

REPORT INFORMATION
  Report Type: 
  Country: None (occurrence: None)
  Receive Date: 20071113
  Receipt Date: 20071113
  Transmission Date: 20080405
  Serious: Yes (Other)
  Sender: FDA-Public Use
  Company Number: None

PATIENT
  Age: 67 Year
  Sex: Male
  Weight: 86.1834 kg

DRUGS (1)
  1. ENALAPRIL MALEATE [Suspect]
     Indication: HYPERTENSION
     Dosage: TAKE ONE TWICE DAILY  AM AND PM  PO
     Route: 048
     Dates: start: 20060721, end: 20060726

REACTIONS (1)
  - DIARRHOEA [None]
